FAERS Safety Report 4498814-5 (Version None)
Quarter: 2004Q4

REPORT INFORMATION
  Report Type: 
  Country: None (occurrence: None)
  Receive Date: 20041108
  Receipt Date: 20041020
  Transmission Date: 20050328
  Serious: Yes (Hospitalization)
  Sender: FDA-Public Use
  Company Number: A01200405365

PATIENT
  Age: 0 Day
  Sex: Female

DRUGS (3)
  1. PLAVIX [Suspect]
     Indication: DRUG EXPOSURE DURING PREGNANCY
     Dosage: 75 MG QD TRANSPLACENTAL - TIME TO ONSET :  8 MONTHS
     Route: 064
     Dates: start: 20030901, end: 20040422
  2. ISOTEN(BISOPROLOL FUMARATE) [Concomitant]
  3. DELTACORTRIL [Concomitant]

REACTIONS (2)
  - DRUG EXPOSURE DURING PREGNANCY [None]
  - HYPOGLYCAEMIA NEONATAL [None]
